FAERS Safety Report 15619748 (Version 7)
Quarter: 2019Q3

REPORT INFORMATION
  Report Type: Spontaneous
  Country: CA (occurrence: CA)
  Receive Date: 20181115
  Receipt Date: 20190930
  Transmission Date: 20191004
  Serious: Yes (Other)
  Sender: FDA-Public Use
  Company Number: CA-ABBVIE-18K-028-2555750-00

PATIENT
  Age: 77 Year
  Sex: Female

DRUGS (13)
  1. ORENCIA [Suspect]
     Active Substance: ABATACEPT
     Indication: CONTRAINDICATED PRODUCT ADMINISTERED
     Route: 065
  2. PLAQUENIL [Suspect]
     Active Substance: HYDROXYCHLOROQUINE SULFATE
     Indication: RHEUMATOID ARTHRITIS
     Route: 065
  3. ORENCIA [Suspect]
     Active Substance: ABATACEPT
     Indication: PRODUCT USED FOR UNKNOWN INDICATION
  4. METHOTREXATE. [Suspect]
     Active Substance: METHOTREXATE
     Indication: RHEUMATOID ARTHRITIS
     Route: 058
  5. SULFASALAZINE. [Suspect]
     Active Substance: SULFASALAZINE
     Indication: RHEUMATOID ARTHRITIS
     Route: 065
  6. HUMIRA [Suspect]
     Active Substance: ADALIMUMAB
     Indication: PRODUCT USED FOR UNKNOWN INDICATION
     Route: 058
  7. ACTEMRA [Suspect]
     Active Substance: TOCILIZUMAB
     Indication: CONTRAINDICATED PRODUCT ADMINISTERED
     Route: 065
  8. ENBREL [Suspect]
     Active Substance: ETANERCEPT
     Indication: RHEUMATOID ARTHRITIS
     Route: 065
  9. HUMIRA [Suspect]
     Active Substance: ADALIMUMAB
     Route: 058
  10. ARAVA [Suspect]
     Active Substance: LEFLUNOMIDE
     Indication: CONTRAINDICATED PRODUCT ADMINISTERED
     Route: 065
  11. ARAVA [Suspect]
     Active Substance: LEFLUNOMIDE
     Indication: PRODUCT USED FOR UNKNOWN INDICATION
  12. PREDNISONE. [Suspect]
     Active Substance: PREDNISONE
     Indication: CONTRAINDICATED PRODUCT ADMINISTERED
     Route: 048
  13. XELJANZ [Concomitant]
     Active Substance: TOFACITINIB CITRATE
     Indication: RHEUMATOID ARTHRITIS
     Route: 048

REACTIONS (12)
  - Contraindicated product administered [Unknown]
  - Joint swelling [Unknown]
  - Arthropathy [Unknown]
  - Pain [Unknown]
  - Condition aggravated [Unknown]
  - Fatigue [Unknown]
  - Adverse drug reaction [Unknown]
  - Rheumatoid arthritis [Unknown]
  - Loss of personal independence in daily activities [Unknown]
  - Peripheral swelling [Unknown]
  - Drug ineffective [Unknown]
  - Arthralgia [Unknown]
